FAERS Safety Report 6542899-9 (Version None)
Quarter: 2010Q1

REPORT INFORMATION
  Report Type: 
  Country: None (occurrence: None)
  Receive Date: 20100120
  Receipt Date: 20100106
  Transmission Date: 20100710
  Serious: Yes (Hospitalization)
  Sender: FDA-Public Use
  Company Number: US-BAYER-201010546NA

PATIENT
  Age: 0 Hour
  Sex: Female
  Weight: 3.515 kg

DRUGS (3)
  1. BETASERON [Suspect]
     Indication: MULTIPLE SCLEROSIS
     Route: 064
  2. KEPPRA [Concomitant]
     Indication: URINARY TRACT INFECTION
     Route: 064
  3. CIPRO [Concomitant]
     Indication: URINARY TRACT INFECTION
     Route: 064

REACTIONS (1)
  - NEONATAL DISORDER [None]
